FAERS Safety Report 10670538 (Version 1)
Quarter: 2014Q4

REPORT INFORMATION
  Report Type: Spontaneous
  Country: MX (occurrence: None)
  Receive Date: 20141219
  Receipt Date: 20141219
  Transmission Date: 20150529
  Serious: Yes (Death)
  Sender: FDA-Public Use
  Company Number: A1067240A

PATIENT
  Sex: Male

DRUGS (5)
  1. PAROXETINE HYDROCHLORIDE UNKNOWN [Suspect]
     Active Substance: PAROXETINE HYDROCHLORIDE
     Indication: RESTLESSNESS
     Dosage: UNKNOWN
     Dates: start: 2012
  2. NIMODIPINE. [Concomitant]
     Active Substance: NIMODIPINE
  3. RIVASTIGMINE HYDROG. TARTR. [Suspect]
     Active Substance: RIVASTIGMINE TARTRATE
     Indication: CEREBROVASCULAR ACCIDENT
     Route: 062
     Dates: start: 201310, end: 201402
  4. STALEVO [Suspect]
     Active Substance: CARBIDOPA\ENTACAPONE\LEVODOPA
     Indication: ILL-DEFINED DISORDER
  5. ANTIDEPRESSANT [Concomitant]
     Active Substance: UNSPECIFIED INGREDIENT

REACTIONS (3)
  - Cerebrovascular accident [None]
  - Off label use [None]
  - Infarction [None]

NARRATIVE: CASE EVENT DATE: 2012
